FAERS Safety Report 16388897 (Version 1)
Quarter: 2019Q2

REPORT INFORMATION
  Report Type: Spontaneous
  Country: US (occurrence: US)
  Receive Date: 20190604
  Receipt Date: 20190604
  Transmission Date: 20190711
  Serious: No
  Sender: FDA-Public Use
  Company Number: US-BAUSCH-BL-2019-015774

PATIENT
  Age: 72 Year
  Sex: Female
  Weight: 82.63 kg

DRUGS (1)
  1. ALAWAY [Suspect]
     Active Substance: KETOTIFEN FUMARATE
     Indication: EYE ALLERGY
     Dosage: EACH EYE, IN EVENING
     Route: 047
     Dates: start: 20190523, end: 20190523

REACTIONS (1)
  - Eye swelling [Recovering/Resolving]

NARRATIVE: CASE EVENT DATE: 20190524
